FAERS Safety Report 23192935 (Version 7)
Quarter: 2024Q3

REPORT INFORMATION
  Report Type: Other
  Country: US (occurrence: US)
  Receive Date: 20231116
  Receipt Date: 20240815
  Transmission Date: 20241017
  Serious: No
  Sender: TRAVERE THERAPEUTICS
  Company Number: US-TRAVERE-2023TVT00649

PATIENT
  Age: 59 Year
  Sex: Male
  Weight: 101.2 kg

DRUGS (8)
  1. FILSPARI [Suspect]
     Active Substance: SPARSENTAN
     Indication: IgA nephropathy
     Dosage: 200 MG
     Route: 048
     Dates: start: 20231018
  2. FILSPARI [Suspect]
     Active Substance: SPARSENTAN
     Route: 048
     Dates: start: 202310
  3. LIPITOR [Suspect]
     Active Substance: ATORVASTATIN CALCIUM
     Indication: Product used for unknown indication
  4. ELIQUIS [Suspect]
     Active Substance: APIXABAN
     Indication: Product used for unknown indication
  5. REPATHA [Suspect]
     Active Substance: EVOLOCUMAB
     Indication: Product used for unknown indication
  6. SIMPONI [Concomitant]
     Active Substance: GOLIMUMAB
  7. TYLENOL EX-STR 500 MG CAPLET [Concomitant]
  8. CALCIUM CITRATE [Concomitant]
     Active Substance: CALCIUM CITRATE

REACTIONS (13)
  - Diarrhoea [None]
  - Urine abnormality [Recovering/Resolving]
  - Flatulence [Unknown]
  - Faeces discoloured [Unknown]
  - Back pain [None]
  - Faeces soft [None]
  - Anxiety [Unknown]
  - Peripheral swelling [Unknown]
  - Drug interaction [Unknown]
  - Muscle spasms [Recovered/Resolved]
  - Pain in extremity [Unknown]
  - Hypoaesthesia [Unknown]
  - Pain [Unknown]

NARRATIVE: CASE EVENT DATE: 20231018
